FAERS Safety Report 8620385-X (Version None)
Quarter: 2012Q3

REPORT INFORMATION
  Report Type: 
  Country: None (occurrence: None)
  Receive Date: 20120824
  Receipt Date: 20120814
  Transmission Date: 20120928
  Serious: Yes (Congenital Anomaly)
  Sender: FDA-Public Use
  Company Number: US-GLAXOSMITHKLINE-A0990793A

PATIENT
  Sex: Male

DRUGS (2)
  1. PAXIL CR [Suspect]
     Indication: PRODUCT USED FOR UNKNOWN INDICATION
     Dosage: 12.5MG PER DAY
     Route: 064
  2. VITAMIN AND MINERAL PRENATAL SUPPLEMENT W/ FOLIC ACID CAP [Concomitant]

REACTIONS (3)
  - CRYPTORCHISM [None]
  - FOETAL EXPOSURE DURING PREGNANCY [None]
  - HYDROCELE [None]
